FAERS Safety Report 12596975 (Version 1)
Quarter: 2016Q3

REPORT INFORMATION
  Report Type: Spontaneous
  Country: DE (occurrence: DE)
  Receive Date: 20160727
  Receipt Date: 20160727
  Transmission Date: 20161109
  Serious: Yes (Hospitalization)
  Sender: FDA-Public Use
  Company Number: GXKR2016DE003511

PATIENT

DRUGS (2)
  1. MACROGOL [Concomitant]
     Active Substance: POLYETHYLENE GLYCOLS
     Indication: CONSTIPATION
     Dosage: DAILY DOSE: 1 DF DOSAGE FORM EVERY DAYS
     Route: 048
  2. RIVASTIGMINE. [Suspect]
     Active Substance: RIVASTIGMINE
     Indication: DEMENTIA
     Dosage: DAILY DOSE: 14.1 MG MILLGRAM(S) EVERY DAYS
     Route: 062
     Dates: end: 20160706

REACTIONS (1)
  - Pancreatitis [Unknown]

NARRATIVE: CASE EVENT DATE: 20160705
